FAERS Safety Report 8948426 (Version 2)
Quarter: 2012Q4

REPORT INFORMATION
  Report Type: 
  Country: US (occurrence: US)
  Receive Date: 20121121
  Receipt Date: 20121212
  Transmission Date: 20130627
  Serious: Yes (Death, Hospitalization)
  Sender: FDA-Public Use
  Company Number: US-ASTELLAS-1116906

PATIENT
  Sex: Male

DRUGS (2)
  1. TARCEVA [Suspect]
     Indication: MALIGNANT RESPIRATORY TRACT NEOPLASM
     Route: 048
     Dates: start: 200606, end: 20060802
  2. TARCEVA [Suspect]
     Indication: OROPHARYNGEAL CANCER STAGE UNSPECIFIED

REACTIONS (2)
  - Oropharyngeal cancer [Fatal]
  - Adrenal gland cancer [Fatal]
